FAERS Safety Report 22521802 (Version 1)
Quarter: 2023Q2

REPORT INFORMATION
  Report Type: Spontaneous
  Country: US (occurrence: US)
  Receive Date: 20230605
  Receipt Date: 20230605
  Transmission Date: 20230721
  Serious: Yes (Other)
  Sender: FDA-Public Use
  Company Number: US-002147023-NVSC2023US124326

PATIENT
  Age: 9 Year
  Sex: Male

DRUGS (1)
  1. PAZOPANIB [Suspect]
     Active Substance: PAZOPANIB
     Indication: Adenomatous polyposis coli
     Dosage: UNK
     Route: 065

REACTIONS (4)
  - Adenomatous polyposis coli [Unknown]
  - Disease progression [Unknown]
  - Product use in unapproved indication [Unknown]
  - Product use issue [Unknown]
